FAERS Safety Report 20963473 (Version 2)
Quarter: 2022Q3

REPORT INFORMATION
  Report Type: Spontaneous
  Country: FR (occurrence: FR)
  Receive Date: 20220615
  Receipt Date: 20220730
  Transmission Date: 20221027
  Serious: Yes (Hospitalization)
  Sender: FDA-Public Use
  Company Number: None

PATIENT
  Age: 37 Year
  Sex: Male
  Weight: 82 kg

DRUGS (2)
  1. RINVOQ [Suspect]
     Active Substance: UPADACITINIB
     Indication: Dermatitis atopic
     Route: 048
     Dates: start: 20220301, end: 20220531
  2. RINVOQ [Suspect]
     Active Substance: UPADACITINIB
     Indication: Dermatitis atopic

REACTIONS (10)
  - Cardiac failure [Recovered/Resolved]
  - Ventricular arrhythmia [Recovered/Resolved]
  - Condition aggravated [Recovered/Resolved]
  - Haemodynamic instability [Unknown]
  - Blood pressure diastolic increased [Unknown]
  - Ejection fraction abnormal [Unknown]
  - Dyspnoea [Unknown]
  - Syncope [Unknown]
  - Atrial natriuretic peptide increased [Unknown]
  - Supraventricular tachycardia [Recovered/Resolved]

NARRATIVE: CASE EVENT DATE: 20220101
